FAERS Safety Report 23734613 (Version 1)
Quarter: 2024Q2

REPORT INFORMATION
  Report Type: Spontaneous
  Country: US (occurrence: US)
  Receive Date: 20240412
  Receipt Date: 20240412
  Transmission Date: 20240716
  Serious: Yes (Other)
  Sender: FDA-Public Use
  Company Number: US-TEVA-VS-3138737

PATIENT
  Age: 72 Year
  Sex: Female

DRUGS (3)
  1. LORAZEPAM [Suspect]
     Active Substance: LORAZEPAM
     Indication: Anxiety
     Dosage: AT NIGHT
     Route: 065
  2. CITALOPRAM [Concomitant]
     Active Substance: CITALOPRAM\CITALOPRAM HYDROBROMIDE
     Indication: Product used for unknown indication
     Route: 065
  3. Leadings lorazepam [Concomitant]

REACTIONS (13)
  - Drug dependence [Unknown]
  - Adverse drug reaction [Unknown]
  - Brain fog [Unknown]
  - Malaise [Unknown]
  - Feeling abnormal [Recovered/Resolved]
  - Drug ineffective [Unknown]
  - Dizziness [Unknown]
  - Vertigo [Unknown]
  - Headache [Unknown]
  - Chills [Unknown]
  - Balance disorder [Recovered/Resolved]
  - Thinking abnormal [Recovered/Resolved]
  - Dissociative disorder [Recovered/Resolved]
